FAERS Safety Report 21369458 (Version 2)
Quarter: 2022Q4

REPORT INFORMATION
  Report Type: Spontaneous
  Country: US (occurrence: US)
  Receive Date: 20220923
  Receipt Date: 20221021
  Transmission Date: 20230113
  Serious: Yes (Other)
  Sender: FDA-Public Use
  Company Number: US-TEVA-2022-US-2073795

PATIENT
  Age: 67 Year
  Sex: Male

DRUGS (1)
  1. EPINEPHRINE [Suspect]
     Active Substance: EPINEPHRINE
     Indication: Allergy to arthropod sting
     Dosage: 0.3/0.3 MG/ML
     Route: 065

REACTIONS (5)
  - Injury [Unknown]
  - Device deployment issue [Unknown]
  - Device failure [Unknown]
  - Expired product administered [Unknown]
  - Adverse event [Unknown]

NARRATIVE: CASE EVENT DATE: 20220907
